FAERS Safety Report 25933367 (Version 1)
Quarter: 2025Q4

REPORT INFORMATION
  Report Type: Report from Study
  Country: EU (occurrence: EU)
  Receive Date: 20251017
  Receipt Date: 20251017
  Transmission Date: 20260118
  Serious: Yes (Hospitalization)
  Sender: ABBVIE
  Company Number: EU-ABBVIE-6504460

PATIENT
  Age: 73 Year
  Sex: Male

DRUGS (2)
  1. CARBIDOPA [Suspect]
     Active Substance: CARBIDOPA
     Indication: Parkinson^s disease
     Dosage: DAILY DOSE: 1.180 MG/DAY MD: 5ML+3ML CR: 3.2ML/H (15H) ED: 3ML
     Route: 050
     Dates: start: 20211118
  2. CARBIDOPA [Suspect]
     Active Substance: CARBIDOPA

REACTIONS (2)
  - Fall [Unknown]
  - Craniofacial fracture [Not Recovered/Not Resolved]

NARRATIVE: CASE EVENT DATE: 20251001
